FAERS Safety Report 6822501-9 (Version None)
Quarter: 2010Q3

REPORT INFORMATION
  Report Type: 
  Country: None (occurrence: None)
  Receive Date: 20100707
  Receipt Date: 20100707
  Transmission Date: 20110219
  Serious: Yes (Other)
  Sender: FDA-Public Use
  Company Number: None

PATIENT
  Age: 40 Year
  Sex: Male
  Weight: 79.3795 kg

DRUGS (2)
  1. LEVAQUIN [Suspect]
     Indication: EAR INFECTION
     Dosage: 500MG DAILY PO
     Route: 048
     Dates: start: 20100625, end: 20100629
  2. LEVAQUIN [Suspect]
     Indication: SINUSITIS
     Dosage: 500MG DAILY PO
     Route: 048
     Dates: start: 20100625, end: 20100629

REACTIONS (7)
  - ALTERED STATE OF CONSCIOUSNESS [None]
  - ARTHRALGIA [None]
  - DIZZINESS [None]
  - GAIT DISTURBANCE [None]
  - HYPOAESTHESIA [None]
  - MUSCULAR WEAKNESS [None]
  - PANIC ATTACK [None]
